FAERS Safety Report 5976618-1 (Version None)
Quarter: 2008Q4

REPORT INFORMATION
  Report Type: 
  Country: None (occurrence: None)
  Receive Date: 20081203
  Receipt Date: 20081124
  Transmission Date: 20090506
  Serious: Yes (Hospitalization)
  Sender: FDA-Public Use
  Company Number: IN-RANBAXY-2008RR-19568

PATIENT
  Age: 4 Year
  Sex: Male

DRUGS (2)
  1. ACETAMINOPHEN [Suspect]
     Indication: PYREXIA
     Dosage: 30 MG/KG, UNK
  2. ACETAMINOPHEN [Suspect]
     Dosage: 20 MG/KG, UNK

REACTIONS (2)
  - ANGIOEDEMA [None]
  - RASH [None]
